FAERS Safety Report 9033595 (Version 2)
Quarter: 2013Q1

REPORT INFORMATION
  Report Type: Spontaneous
  Country: US (occurrence: US)
  Receive Date: 20130128
  Receipt Date: 20130129
  Transmission Date: 20140127
  Serious: Yes (Hospitalization)
  Sender: FDA-Public Use
  Company Number: US-ELI_LILLY_AND_COMPANY-US201301005812

PATIENT
  Sex: Female

DRUGS (1)
  1. SARAFEM [Suspect]
     Indication: POSTPARTUM DEPRESSION
     Dosage: 1 DF, UNKNOWN
     Dates: start: 2009

REACTIONS (3)
  - Schizoaffective disorder [Unknown]
  - Quality of life decreased [Unknown]
  - Malaise [Unknown]
